FAERS Safety Report 8254872-3 (Version None)
Quarter: 2012Q2

REPORT INFORMATION
  Report Type: 
  Country: None (occurrence: None)
  Receive Date: 20120403
  Receipt Date: 20120327
  Transmission Date: 20120825
  Serious: Yes (Hospitalization, Other)
  Sender: FDA-Public Use
  Company Number: BE-AMGEN-BELSP2012014996

PATIENT

DRUGS (4)
  1. ETOPOSIDE [Concomitant]
     Dosage: 200 MG, 5 TIMES/WK
     Route: 042
     Dates: start: 20120123, end: 20120315
  2. NEULASTA [Suspect]
     Indication: CHEMOTHERAPY
     Dosage: 6 MG, Q3WK
     Route: 058
     Dates: start: 20120121, end: 20120128
  3. BLEOMYCIN SULFATE [Concomitant]
     Dosage: 20 UNIT, QWK
     Route: 042
     Dates: start: 20120123, end: 20120315
  4. CISPLATIN [Concomitant]
     Dosage: UNK UNK, 5 TIMES/WK
     Route: 042
     Dates: start: 20120123, end: 20120315

REACTIONS (2)
  - EMBOLISM [None]
  - PELVIC VENOUS THROMBOSIS [None]
